FAERS Safety Report 6665658-5 (Version None)
Quarter: 2010Q2

REPORT INFORMATION
  Report Type: 
  Country: None (occurrence: None)
  Receive Date: 20100402
  Receipt Date: 20100323
  Transmission Date: 20101027
  Serious: Yes (Other)
  Sender: FDA-Public Use
  Company Number: US-PFIZER INC-2010037726

PATIENT

DRUGS (2)
  1. CHANTIX [Suspect]
  2. ALCOHOL [Interacting]

REACTIONS (2)
  - ALCOHOL INTERACTION [None]
  - LOSS OF CONSCIOUSNESS [None]
